FAERS Safety Report 22960802 (Version 4)
Quarter: 2024Q1

REPORT INFORMATION
  Report Type: Spontaneous
  Country: US (occurrence: US)
  Receive Date: 20230920
  Receipt Date: 20240308
  Transmission Date: 20240409
  Serious: Yes (Other)
  Sender: FDA-Public Use
  Company Number: US-BRISTOL-MYERS SQUIBB COMPANY-2023-132975

PATIENT
  Age: 69 Year
  Sex: Female

DRUGS (2)
  1. ORENCIA [Suspect]
     Active Substance: ABATACEPT
     Indication: Rheumatoid arthritis
     Route: 058
     Dates: start: 201906
  2. ALBUTEROL [Concomitant]
     Active Substance: ALBUTEROL
     Indication: Product used for unknown indication

REACTIONS (8)
  - COVID-19 [Unknown]
  - Influenza [Unknown]
  - Joint swelling [Unknown]
  - Arthralgia [Unknown]
  - Feeling abnormal [Unknown]
  - Insurance issue [Unknown]
  - Therapy interrupted [Unknown]
  - Mania [Unknown]

NARRATIVE: CASE EVENT DATE: 20230903
